FAERS Safety Report 4911067-6 (Version None)
Quarter: 2006Q1

REPORT INFORMATION
  Report Type: 
  Country: None (occurrence: None)
  Receive Date: 20060214
  Receipt Date: 20060203
  Transmission Date: 20060701
  Serious: Yes (Hospitalization)
  Sender: FDA-Public Use
  Company Number: FR-BRISTOL-MYERS SQUIBB COMPANY-13272885

PATIENT
  Age: 64 Year
  Sex: Female

DRUGS (10)
  1. HOLOXAN [Suspect]
     Indication: DRUG USE FOR UNKNOWN INDICATION
     Route: 042
     Dates: start: 20051026, end: 20051119
  2. CISPLATIN [Suspect]
     Indication: DRUG USE FOR UNKNOWN INDICATION
     Route: 042
     Dates: start: 20051026, end: 20051119
  3. DOXORUBICIN HCL [Suspect]
  4. COZAAR [Concomitant]
     Dates: start: 20040101, end: 20051123
  5. ZOLOFT [Concomitant]
  6. TAMOXIFEN CITRATE [Concomitant]
     Dates: end: 20040101
  7. EMEND [Concomitant]
     Dates: start: 20051117, end: 20051119
  8. PRIMPERAN TAB [Concomitant]
  9. DOXORUBICIN HCL [Concomitant]
     Dates: start: 20051026, end: 20051119
  10. LASILIX [Concomitant]
     Dates: start: 20051117, end: 20051119

REACTIONS (5)
  - BLOOD CREATININE INCREASED [None]
  - DIARRHOEA [None]
  - FEBRILE BONE MARROW APLASIA [None]
  - FLUID RETENTION [None]
  - VOMITING [None]
